FAERS Safety Report 24552776 (Version 1)
Quarter: 2024Q4

REPORT INFORMATION
  Report Type: Spontaneous
  Country: DK (occurrence: DK)
  Receive Date: 20241027
  Receipt Date: 20241027
  Transmission Date: 20250114
  Serious: Yes (Hospitalization, Other)
  Sender: ALEXION PHARMACEUTICALS
  Company Number: None

PATIENT
  Age: 88 Year

DRUGS (8)
  1. DAPAGLIFLOZIN [Suspect]
     Active Substance: DAPAGLIFLOZIN
     Indication: Diabetes mellitus
  2. DAPAGLIFLOZIN [Suspect]
     Active Substance: DAPAGLIFLOZIN
  3. DAPAGLIFLOZIN [Suspect]
     Active Substance: DAPAGLIFLOZIN
  4. DAPAGLIFLOZIN [Suspect]
     Active Substance: DAPAGLIFLOZIN
  5. METFORMIN HYDROCHLORIDE\SITAGLIPTIN [Suspect]
     Active Substance: METFORMIN HYDROCHLORIDE\SITAGLIPTIN
     Indication: Diabetes mellitus
     Dosage: STRENGTH: 50 MG/1000 MG
  6. METFORMIN HYDROCHLORIDE\SITAGLIPTIN [Suspect]
     Active Substance: METFORMIN HYDROCHLORIDE\SITAGLIPTIN
     Dosage: STRENGTH: 50 MG/1000 MG
  7. TOUJEO [Suspect]
     Active Substance: INSULIN GLARGINE
     Indication: Diabetes mellitus
  8. TOUJEO [Suspect]
     Active Substance: INSULIN GLARGINE

REACTIONS (2)
  - Syncope [Recovered/Resolved]
  - Hypoglycaemia [Unknown]
